FAERS Safety Report 6730267-6 (Version None)
Quarter: 2010Q2

REPORT INFORMATION
  Report Type: 
  Country: None (occurrence: None)
  Receive Date: 20100513
  Receipt Date: 20100504
  Transmission Date: 20101027
  Serious: Yes (Other)
  Sender: FDA-Public Use
  Company Number: 2010SP025765

PATIENT
  Age: 63 Year
  Sex: Male
  Weight: 92.5338 kg

DRUGS (1)
  1. LIDOCAINE HCL [Suspect]
     Indication: SKIN IRRITATION
     Dosage: TOP
     Route: 061

REACTIONS (11)
  - BACTERIAL INFECTION [None]
  - BALANITIS [None]
  - BLOOD PRESSURE INCREASED [None]
  - DERMATITIS [None]
  - DIABETES MELLITUS [None]
  - DRUG HYPERSENSITIVITY [None]
  - ERECTILE DYSFUNCTION [None]
  - GENITAL BURNING SENSATION [None]
  - GENITAL RASH [None]
  - PENILE BLISTER [None]
  - TINEA CRURIS [None]
